FAERS Safety Report 9720577 (Version 2)
Quarter: 2013Q4

REPORT INFORMATION
  Report Type: Spontaneous
  Country: US (occurrence: US)
  Receive Date: 20131129
  Receipt Date: 20131204
  Transmission Date: 20140711
  Serious: Yes (Other)
  Sender: FDA-Public Use
  Company Number: US-RB-060172-13

PATIENT
  Age: 88 Year
  Sex: Male

DRUGS (2)
  1. MUCINEX DM [Suspect]
     Indication: PRODUCT USED FOR UNKNOWN INDICATION
     Dosage: 20 ML IN EVERY 4 HOURS
  2. MUCINEX DM [Suspect]
     Dosage: TAKING PRODUCT IN EVERY 6 HOURS

REACTIONS (1)
  - Convulsion [Unknown]
